FAERS Safety Report 5116808-3 (Version None)
Quarter: 2006Q3

REPORT INFORMATION
  Report Type: 
  Country: None (occurrence: None)
  Receive Date: 20060925
  Receipt Date: 20060912
  Transmission Date: 20061208
  Serious: Yes (Hospitalization)
  Sender: FDA-Public Use
  Company Number: 2006111948

PATIENT
  Age: 80 Year
  Sex: Male

DRUGS (11)
  1. CELEBREX [Suspect]
     Dates: end: 20060101
  2. NAMENDA [Suspect]
     Indication: DEMENTIA
     Dosage: 10 MG (5 MG, 2 IN 1 D), ORAL
     Route: 048
     Dates: end: 20060101
  3. NAMENDA [Suspect]
     Indication: DEMENTIA
     Dosage: 10 MG (5 MG, 2 IN 1 D), ORAL
     Route: 048
     Dates: start: 20060101, end: 20060803
  4. NAMENDA [Suspect]
     Indication: DEMENTIA
     Dosage: 10 MG (5 MG, 2 IN 1 D), ORAL
     Route: 048
     Dates: start: 20060804
  5. HALDOL [Suspect]
     Dates: start: 20060101, end: 20060101
  6. AMBIEN [Concomitant]
  7. CLARITIN [Concomitant]
  8. VALSARTAN [Concomitant]
  9. ACTOS [Concomitant]
  10. COREG [Concomitant]
  11. MECLIZINE [Concomitant]

REACTIONS (4)
  - DEHYDRATION [None]
  - HALLUCINATION [None]
  - RENAL IMPAIRMENT [None]
  - TREMOR [None]
